FAERS Safety Report 8880287 (Version 2)
Quarter: 2019Q1

REPORT INFORMATION
  Report Type: Spontaneous
  Country: NL (occurrence: NL)
  Receive Date: 20121031
  Receipt Date: 20190227
  Transmission Date: 20190418
  Serious: Yes (Other)
  Sender: FDA-Public Use
  Company Number: PHHY2012NL097617

PATIENT
  Age: 27 Year
  Sex: Female

DRUGS (3)
  1. OMEPRAZOLE. [Suspect]
     Active Substance: OMEPRAZOLE
     Indication: ABDOMINAL PAIN UPPER
     Route: 065
  2. DESOXIMETASONE. [Concomitant]
     Active Substance: DESOXIMETASONE
     Indication: PSORIASIS
     Dosage: 15 MG, QW
     Route: 065
  3. METHOTREXATE. [Concomitant]
     Active Substance: METHOTREXATE
     Indication: PSORIASIS
     Dosage: 15 MG, QW
     Route: 065

REACTIONS (12)
  - Erythema [Recovered/Resolved]
  - Rash pustular [Recovered/Resolved]
  - White blood cell count increased [Unknown]
  - Eosinophil count increased [Unknown]
  - Neutrophilia [Unknown]
  - Symmetrical drug-related intertriginous and flexural exanthema [Recovered/Resolved]
  - Neutrophil count increased [Unknown]
  - Alanine aminotransferase increased [Unknown]
  - Eosinophilia [Unknown]
  - Rash macular [Recovered/Resolved]
  - Pruritus [Recovered/Resolved]
  - Erythema of eyelid [Recovered/Resolved]
